FAERS Safety Report 14335887 (Version 1)
Quarter: 2017Q4

REPORT INFORMATION
  Report Type: Spontaneous
  Country: IT (occurrence: IT)
  Receive Date: 20171229
  Receipt Date: 20171229
  Transmission Date: 20180321
  Serious: Yes (Death)
  Sender: FDA-Public Use
  Company Number: IT-SCIEGEN PHARMACEUTICALS INC-2017SCILIT00804

PATIENT
  Age: 42 Year
  Sex: Female

DRUGS (7)
  1. DIPOTASSIUM CLORAZEPATE [Concomitant]
     Active Substance: CLORAZEPATE DIPOTASSIUM
     Indication: DEPRESSION
     Dosage: UNK
     Route: 065
  2. TOPIRAMATE. [Concomitant]
     Active Substance: TOPIRAMATE
     Indication: SEIZURE
     Dosage: UNK
     Route: 065
  3. PHENYLPROPANOLAMINE [Suspect]
     Active Substance: PHENYLPROPANOLAMINE
     Indication: WEIGHT DECREASED
     Dosage: 30 TO 90 MG, QD IN 9 CYCLES, RANGING FROM 2 TO 8 MONTHS WITH 1 TO 4 MONTHS INTERVAL
     Route: 065
  4. FLUOXETINE [Concomitant]
     Active Substance: FLUOXETINE HYDROCHLORIDE
     Indication: PRODUCT USED FOR UNKNOWN INDICATION
     Dosage: UNK
     Route: 065
  5. TOPIRAMATE. [Concomitant]
     Active Substance: TOPIRAMATE
     Indication: DECREASED APPETITE
  6. BUPROPION HYDROCHLORIDE. [Suspect]
     Active Substance: BUPROPION HYDROCHLORIDE
     Indication: WEIGHT DECREASED
     Dosage: 100 TO150MG, QD IN 9 CYCLES, RANGING FROM 2 TO 8 MONTHS WITH 1 TO 4 MONTHS INTERVAL
     Route: 065
  7. PHENDIMETRAZINE. [Suspect]
     Active Substance: PHENDIMETRAZINE TARTRATE
     Indication: WEIGHT DECREASED
     Dosage: 100 TO 225 MG, QD IN 9 CYCLES, RANGING FROM 2 TO 8 MONTHS WITH 1 TO 4 MONTHS INTERVAL
     Route: 065

REACTIONS (5)
  - Myocarditis [Fatal]
  - Myocardial ischaemia [Fatal]
  - Cardiac death [Fatal]
  - Product use in unapproved indication [None]
  - Myocardial fibrosis [Fatal]
